FAERS Safety Report 8984979 (Version 2)
Quarter: 2013Q1

REPORT INFORMATION
  Report Type: Spontaneous
  Country: US (occurrence: US)
  Receive Date: 20121226
  Receipt Date: 20130103
  Transmission Date: 20140127
  Serious: Yes (Death, Other)
  Sender: FDA-Public Use
  Company Number: US-PFIZER INC-2012325985

PATIENT
  Age: 74 Year
  Sex: Male
  Weight: 83 kg

DRUGS (35)
  1. SUTENT [Suspect]
     Indication: NEOPLASM MALIGNANT
     Dosage: 12.5 MG TABLET AND ONE 25 MG TABLET
  2. SUTENT [Suspect]
     Dosage: UNK
     Dates: start: 20120306
  3. SUTENT [Suspect]
     Dosage: UNK
     Dates: start: 20120224, end: 20121115
  4. 5-FU [Suspect]
     Indication: NEOPLASM MALIGNANT
     Dosage: UNK
     Dates: start: 20101201, end: 20110518
  5. LEUCOVORIN [Suspect]
     Indication: CARCINOID TUMOUR
     Dosage: UNK
  6. AFINITOR [Suspect]
     Dosage: UNK
     Dates: start: 201104
  7. SANDOSTATIN [Suspect]
     Indication: CARCINOID TUMOUR
     Dosage: UNK
     Dates: start: 20101202, end: 20110127
  8. SANDOSTATIN [Suspect]
     Dosage: UNK
     Dates: start: 20110223, end: 20121206
  9. ACETYLSALICYLIC ACID [Concomitant]
     Dosage: 81 MG, 1 EVERY DAY,
     Route: 048
     Dates: start: 20101118
  10. DULCOLAX [Concomitant]
     Indication: CONSTIPATION
     Dosage: 10 MG  DAILY AS NEEDED
     Route: 054
     Dates: start: 20120803
  11. DEXAMETHASONE [Concomitant]
     Dosage: 4 MG, 1 TWICE A DAY FOR 14 DAYS
     Route: 048
     Dates: start: 20120618
  12. EVEROLIMUS [Concomitant]
     Dosage: 10 MG, ONCE DAILY
     Route: 048
     Dates: start: 20110420
  13. EVEROLIMUS [Concomitant]
     Dosage: UNK
  14. FISH OIL [Concomitant]
     Dosage: 1200 M-144 MG-216 MG
  15. FLAGYL [Concomitant]
     Dosage: 500 MG, 1 PER ORALLY THREE TIMES A DAY
     Route: 048
     Dates: start: 20110622
  16. FOLIC ACID [Concomitant]
     Dosage: 400 UG, 1 PER ORALLY EVERY DAY
     Dates: start: 20101118
  17. IRON [Concomitant]
     Dosage: 325 MG, 1 PER ORALLY EVERY  DAY (65 MG)
     Route: 048
     Dates: start: 20120816
  18. LOMOTIL [Concomitant]
     Dosage: UNK, 2.5 MG - 0.025 MG TAB USE AS DIRECTED
     Dates: start: 20101202
  19. LOSARTAN [Concomitant]
     Dosage: 25 MG, 1 PER ORALLY EVERY DAY
     Route: 048
     Dates: start: 20110812
  20. LOSARTAN [Concomitant]
     Dosage: 50 MG, 1 PER ORALLY EVERY DAY
     Route: 048
     Dates: start: 20111201
  21. LOSARTAN [Concomitant]
     Dosage: 100 MG, 1 PER ORALLY EVERY DAY
     Route: 048
     Dates: start: 20120816
  22. LOSARTAN POTASSIUM W/HYDROCHLOROTHIAZIDE [Concomitant]
     Dosage: 100 MG -25 MG TAB 1 PER ORALLY EVERY DAY
     Dates: start: 20111230
  23. MAGNESIUM OXIDE [Concomitant]
     Dosage: 400 MG, 1 PER ORALLY EVERY DAY
     Route: 048
     Dates: start: 20121011
  24. MEGESTROL [Concomitant]
     Dosage: 40 MG, 1 PER ORALLY TWICE A DAY
     Route: 048
  25. MIRALAX [Concomitant]
     Indication: CONSTIPATION
     Dosage: 17 MG, 1 PKT PER ORALLY EVERY DAY AS NEEDED
     Dates: start: 20120803
  26. NEXIUM [Concomitant]
     Indication: ABDOMINAL DISCOMFORT
     Dosage: 40 MG, 1 PER ORALLY EVERYDAY
     Route: 048
     Dates: start: 20120803
  27. PERCOCET [Concomitant]
     Dosage: 5 MG -325 MG TAB
     Dates: start: 20120816
  28. POTASSIUM CHLORIDE [Concomitant]
     Dosage: 1 PER ORALLY EVERY DAY X 1 WEEK THEN AS NEEDED
     Route: 048
     Dates: start: 20110615
  29. PROMETHAZINE [Concomitant]
     Indication: NAUSEA
     Dosage: 12.5 MG, 1 PER ORALLY EVERY  6-8 HOURS
     Route: 048
     Dates: start: 20111007
  30. SYNTHROID [Concomitant]
     Dosage: 150 UG, 1 PER ORALLY EVERY DAY
     Route: 048
     Dates: start: 20101118
  31. TOPROL XL [Concomitant]
     Dosage: 100 MG, 1 PER ORALLY EVERY DAY
     Route: 048
     Dates: start: 20110126
  32. VYTORIN [Concomitant]
     Dosage: 10-40 TAB 1 PER ORALLY EVERY DAY
     Route: 048
     Dates: start: 20100520
  33. ZITHROMAX [Concomitant]
     Dosage: 250 MG, AS DIRECTED
     Dates: start: 20110223
  34. ZOFRAN [Concomitant]
     Indication: NAUSEA
     Dosage: 4 MG, 1 PER ORALLY THREE TIMES DAY
     Route: 048
     Dates: start: 20120224
  35. FLUVACCIN [Concomitant]

REACTIONS (15)
  - Disease progression [Fatal]
  - Neoplasm malignant [Fatal]
  - Renal failure [Unknown]
  - Balance disorder [Unknown]
  - Fall [Unknown]
  - Fatigue [Recovered/Resolved]
  - Hyperlipidaemia [Unknown]
  - Nausea [Unknown]
  - Hypokalaemia [Unknown]
  - Weight decreased [Recovered/Resolved]
  - Anaemia [Recovered/Resolved]
  - Abdominal pain upper [Unknown]
  - Gastritis [Unknown]
  - Hypertension [Recovered/Resolved]
  - Muscle spasms [Unknown]
